FAERS Safety Report 7409651-3 (Version None)
Quarter: 2011Q2

REPORT INFORMATION
  Report Type: 
  Country: None (occurrence: None)
  Receive Date: 20110412
  Receipt Date: 20110315
  Transmission Date: 20111010
  Serious: Yes (Hospitalization, Other)
  Sender: FDA-Public Use
  Company Number: US-BAYER-201038230NA

PATIENT
  Age: 51 Year
  Sex: Female
  Weight: 68.027 kg

DRUGS (5)
  1. YASMIN [Suspect]
     Indication: GENITAL HAEMORRHAGE
     Dosage: UNK UNK, UNK
     Route: 048
     Dates: start: 20011108, end: 20050425
  2. VICODIN [Concomitant]
  3. KEFLEX [Concomitant]
  4. FLEXERIL [Concomitant]
  5. PREMARIN [Concomitant]
     Indication: GENITAL HAEMORRHAGE
     Dosage: UNK
     Dates: start: 20050301

REACTIONS (4)
  - ANXIETY [None]
  - PULMONARY EMBOLISM [None]
  - DEPRESSION [None]
  - PANIC ATTACK [None]
